FAERS Safety Report 8085070-4 (Version None)
Quarter: 2012Q1

REPORT INFORMATION
  Report Type: 
  Country: None (occurrence: None)
  Receive Date: 20120128
  Receipt Date: 20110318
  Transmission Date: 20120608
  Serious: Yes (Other)
  Sender: FDA-Public Use
  Company Number: US-ABBOTT-11P-163-0713120-00

PATIENT
  Sex: Male

DRUGS (2)
  1. STELARA [Suspect]
     Indication: PRODUCT USED FOR UNKNOWN INDICATION
     Route: 058
     Dates: start: 20100701
  2. HUMIRA [Suspect]
     Indication: ILL-DEFINED DISORDER
     Dates: start: 20100201

REACTIONS (1)
  - MULTIPLE SCLEROSIS [None]
